FAERS Safety Report 17069847 (Version 1)
Quarter: 2019Q4

REPORT INFORMATION
  Report Type: Report from Study
  Country: US (occurrence: US)
  Receive Date: 20191125
  Receipt Date: 20191125
  Transmission Date: 20200122
  Serious: Yes (Hospitalization)
  Sender: FDA-Public Use
  Company Number: US-TEVA-2019-US-1142462

PATIENT
  Age: 68 Year
  Sex: Female

DRUGS (6)
  1. ZYPREXA [Interacting]
     Active Substance: OLANZAPINE
     Indication: PRODUCT USED FOR UNKNOWN INDICATION
     Route: 065
  2. AUSTEDO [Interacting]
     Active Substance: DEUTETRABENAZINE
     Dosage: THE PATIENT RESTARTED TITRATING
     Route: 065
     Dates: start: 20191026
  3. LITHIUM. [Interacting]
     Active Substance: LITHIUM
     Indication: PRODUCT USED FOR UNKNOWN INDICATION
     Route: 065
  4. AUSTEDO [Suspect]
     Active Substance: DEUTETRABENAZINE
     Indication: PRODUCT USED FOR UNKNOWN INDICATION
     Dosage: INITIAL THERAPY START
     Route: 065
     Dates: start: 20190812
  5. AUSTEDO [Interacting]
     Active Substance: DEUTETRABENAZINE
     Dosage: 24 MILLIGRAM DAILY;
     Route: 065
     Dates: end: 2019
  6. AUSTEDO [Interacting]
     Active Substance: DEUTETRABENAZINE
     Dosage: 15 MILLIGRAM DAILY;
     Route: 065
     Dates: end: 20191120

REACTIONS (8)
  - Drug interaction [Unknown]
  - Anxiety [Not Recovered/Not Resolved]
  - Coordination abnormal [Recovering/Resolving]
  - Product use in unapproved indication [Unknown]
  - Diarrhoea [Not Recovered/Not Resolved]
  - Salivary hypersecretion [Not Recovered/Not Resolved]
  - Loss of personal independence in daily activities [Unknown]
  - Parkinsonism [Not Recovered/Not Resolved]

NARRATIVE: CASE EVENT DATE: 20191001
